FAERS Safety Report 24020134 (Version 5)
Quarter: 2024Q3

REPORT INFORMATION
  Report Type: Report from Study
  Country: CN (occurrence: CN)
  Receive Date: 20240627
  Receipt Date: 20240913
  Transmission Date: 20241016
  Serious: Yes (Hospitalization)
  Sender: G1 THERAPEUTICS
  Company Number: CN-SIMCERE ZAIMING PHARMACEUTICAL CO., LTD.-2024XSYY2578

PATIENT

DRUGS (17)
  1. TRILACICLIB [Suspect]
     Active Substance: TRILACICLIB
     Indication: Breast cancer
     Dosage: 364.2 MG, Q3W, 240 MG/M2
     Route: 042
     Dates: start: 20240118, end: 20240428
  2. DOCETAXEL [Suspect]
     Active Substance: DOCETAXEL\DOCETAXEL ANHYDROUS
     Indication: Breast cancer
     Dosage: 113 MG, Q3W, 75 MG/M2
     Route: 042
     Dates: start: 20240118, end: 20240428
  3. CARBOPLATIN [Suspect]
     Active Substance: CARBOPLATIN
     Indication: Breast cancer
     Dosage: 600 MG, Q3W, AUC=6
     Route: 042
     Dates: start: 20240118, end: 20240428
  4. PERTUZUMAB [Suspect]
     Active Substance: PERTUZUMAB
     Indication: Breast cancer
     Dosage: 840 MG, QD
     Route: 042
     Dates: start: 20240118, end: 20240118
  5. TRASTUZUMAB [Suspect]
     Active Substance: TRASTUZUMAB
     Indication: Breast cancer
     Dosage: 428.8 MG, QD, 8 MG/KG
     Route: 042
     Dates: start: 20240118, end: 20240118
  6. TRASTUZUMAB [Suspect]
     Active Substance: TRASTUZUMAB
     Dosage: 6 MG/KG, Q3W
     Route: 042
     Dates: start: 20240206, end: 20240612
  7. CIMETIDINE [Concomitant]
     Active Substance: CIMETIDINE
     Indication: Gastrointestinal disorder
     Dosage: 0.4 G
     Route: 042
     Dates: start: 20240612, end: 20240612
  8. DEXAMETHASONE [Concomitant]
     Active Substance: DEXAMETHASONE
     Indication: Allergy prophylaxis
     Dosage: 5 MG
     Route: 042
     Dates: start: 20240612, end: 20240612
  9. ZOLPIDEM TARTRATE [Concomitant]
     Active Substance: ZOLPIDEM TARTRATE
     Indication: Insomnia
     Dosage: 10 MG
     Route: 048
     Dates: start: 20240612, end: 20240612
  10. ZOLPIDEM TARTRATE [Concomitant]
     Active Substance: ZOLPIDEM TARTRATE
     Indication: Prophylaxis
  11. ESOMEPRAZOLE MAGNESIUM [Concomitant]
     Active Substance: ESOMEPRAZOLE MAGNESIUM
     Indication: Gastrointestinal disorder
     Dosage: 20 MG
     Route: 048
     Dates: start: 20240612, end: 20240615
  12. DEXAMETHASONE ACETATE [Concomitant]
     Active Substance: DEXAMETHASONE ACETATE
     Indication: Allergy prophylaxis
     Dosage: 3 MG
     Route: 048
     Dates: start: 20240612, end: 20240615
  13. FUROSEMIDE [Concomitant]
     Active Substance: FUROSEMIDE
     Indication: Oedema peripheral
     Dosage: 20 MG
     Route: 048
     Dates: start: 20240530, end: 20240605
  14. METHYLCOBALAMIN [Concomitant]
     Active Substance: METHYLCOBALAMIN
     Indication: Hypoaesthesia
     Dosage: 0.5 MG
     Route: 048
     Dates: start: 20240530
  15. METHYLCOBALAMIN [Concomitant]
     Active Substance: METHYLCOBALAMIN
     Indication: Pain in extremity
  16. PREGABALIN [Concomitant]
     Active Substance: PREGABALIN
     Indication: Hypoaesthesia
     Dosage: 75 MG
     Route: 048
     Dates: start: 20240530, end: 20240614
  17. PREGABALIN [Concomitant]
     Active Substance: PREGABALIN
     Indication: Pain in extremity

REACTIONS (1)
  - Deep vein thrombosis [Recovered/Resolved]

NARRATIVE: CASE EVENT DATE: 20240613
